FAERS Safety Report 5205494-X (Version None)
Quarter: 2006Q4

REPORT INFORMATION
  Report Type: 
  Country: None (occurrence: None)
  Receive Date: 20061027
  Receipt Date: 20060810
  Transmission Date: 20070319
  Serious: Yes (Other)
  Sender: FDA-Public Use
  Company Number: HQWYE408114AUG06

PATIENT
  Age: 58 Year
  Sex: Female
  Weight: 45.4 kg

DRUGS (4)
  1. PREMARIN [Suspect]
     Indication: HYSTERECTOMY
     Dosage: 1 TABLET 1 X PER 1 DAY, ORAL
     Route: 048
     Dates: start: 19920101
  2. DEXEDRINE [Concomitant]
  3. BC (ACETYLSALICYLIC ACID/CAFFEINE/SALICYLAMIDE) [Concomitant]
  4. ACETYLSALICYLIC ACID SRT [Concomitant]

REACTIONS (2)
  - CARDIAC FLUTTER [None]
  - HEART RATE INCREASED [None]
